FAERS Safety Report 25801146 (Version 1)
Quarter: 2025Q3

REPORT INFORMATION
  Report Type: Spontaneous
  Country: RU (occurrence: RU)
  Receive Date: 20250915
  Receipt Date: 20250915
  Transmission Date: 20251020
  Serious: Yes (Other)
  Sender: ACCORD
  Company Number: RU-MLMSERVICE-20250827-PI626814-00082-3

PATIENT
  Age: 14 Year
  Sex: Male

DRUGS (2)
  1. CARBOPLATIN [Suspect]
     Active Substance: CARBOPLATIN
     Indication: Bone marrow conditioning regimen
  2. ETOPOSIDE [Suspect]
     Active Substance: ETOPOSIDE
     Indication: Bone marrow conditioning regimen

REACTIONS (2)
  - Oesophagitis [Unknown]
  - Neutropenic colitis [Unknown]
